FAERS Safety Report 8044085-2 (Version None)
Quarter: 2012Q1

REPORT INFORMATION
  Report Type: 
  Country: None (occurrence: None)
  Receive Date: 20120113
  Receipt Date: 20120110
  Transmission Date: 20120608
  Serious: Yes (Other)
  Sender: FDA-Public Use
  Company Number: AU-JNJFOC-20111205723

PATIENT
  Sex: Male

DRUGS (6)
  1. STELARA [Suspect]
     Indication: PSORIASIS
     Route: 058
     Dates: start: 20101212
  2. STELARA [Suspect]
     Route: 058
     Dates: start: 20110121
  3. STELARA [Suspect]
     Route: 058
     Dates: start: 20110629
  4. STELARA [Suspect]
     Route: 058
     Dates: start: 20110923
  5. ANTIDEPRESSANTS [Concomitant]
  6. STELARA [Suspect]
     Route: 058
     Dates: start: 20110408

REACTIONS (13)
  - DEPRESSION [None]
  - MALAISE [None]
  - MOLE EXCISION [None]
  - DYSPNOEA [None]
  - WHEEZING [None]
  - FEELING ABNORMAL [None]
  - RENAL IMPAIRMENT [None]
  - LOWER RESPIRATORY TRACT INFECTION [None]
  - DYSURIA [None]
  - LUNG DISORDER [None]
  - ASTHENIA [None]
  - DECREASED INTEREST [None]
  - DRUG DOSE OMISSION [None]
